FAERS Safety Report 6181358-2 (Version None)
Quarter: 2009Q2

REPORT INFORMATION
  Report Type: 
  Country: None (occurrence: None)
  Receive Date: 20090506
  Receipt Date: 20090430
  Transmission Date: 20091009
  Serious: Yes (Other)
  Sender: FDA-Public Use
  Company Number: TR-ROXANE LABORATORIES, INC.-2009-RO-00427RO

PATIENT
  Age: 44 Year
  Sex: Female

DRUGS (7)
  1. AZATHIOPRINE [Suspect]
     Indication: MYASTHENIA GRAVIS
     Dosage: 150MG
  2. PREDNISOLONE [Suspect]
     Indication: MYASTHENIA GRAVIS
  3. PYRIDOSTIGMINE BROMIDE [Suspect]
     Indication: MYASTHENIA GRAVIS
     Dosage: 360MG
  4. IMMUNE GLOBULIN INTRAVENOUS (HUMAN) [Suspect]
     Indication: UNEVALUABLE EVENT
     Route: 042
     Dates: end: 20040101
  5. ACYCLOVIR [Suspect]
     Route: 042
     Dates: start: 20041101
  6. METHYLPREDNISOLONE 4MG TAB [Suspect]
     Indication: ACUTE DISSEMINATED ENCEPHALOMYELITIS
     Dosage: 1G
     Route: 042
  7. DEFLAZOCORT [Suspect]
     Indication: IMMUNOSUPPRESSION
     Dosage: 30MG

REACTIONS (2)
  - JC VIRUS INFECTION [None]
  - PROGRESSIVE MULTIFOCAL LEUKOENCEPHALOPATHY [None]
